FAERS Safety Report 10936537 (Version 1)
Quarter: 2015Q1

REPORT INFORMATION
  Report Type: Spontaneous
  Country: None (occurrence: None)
  Receive Date: 20150320
  Receipt Date: 20150320
  Transmission Date: 20150721
  Serious: No
  Sender: FDA-Public Use
  Company Number: None

PATIENT
  Age: 25 Year
  Sex: Female

DRUGS (3)
  1. BUPROPION XL [Concomitant]
     Active Substance: BUPROPION
  2. JUNEL FE 1/20 [Concomitant]
     Active Substance: ETHINYL ESTRADIOL\NORETHINDRONE ACETATE
  3. AMOXICILLIN. [Suspect]
     Active Substance: AMOXICILLIN
     Dosage: 1 TAB
     Route: 048

REACTIONS (3)
  - Pyrexia [None]
  - Rash [None]
  - Chills [None]

NARRATIVE: CASE EVENT DATE: 20140716
